FAERS Safety Report 4685860-1 (Version None)
Quarter: 2005Q2

REPORT INFORMATION
  Report Type: 
  Country: None (occurrence: None)
  Receive Date: 20050607
  Receipt Date: 20050607
  Transmission Date: 20051028
  Serious: No
  Sender: FDA-Public Use
  Company Number: None

PATIENT
  Age: 46 Year
  Sex: Male
  Weight: 68.0396 kg

DRUGS (1)
  1. PROTAMINE 50 MG/ML [Suspect]
     Indication: RENAL FAILURE CHRONIC
     Dosage: 20 MG IV
     Route: 042
     Dates: start: 20050308

REACTIONS (1)
  - CARDIAC ARREST [None]
